FAERS Safety Report 5447573-8 (Version None)
Quarter: 2007Q3

REPORT INFORMATION
  Report Type: 
  Country: None (occurrence: None)
  Receive Date: 20070905
  Receipt Date: 20070813
  Transmission Date: 20080115
  Serious: Yes (Other)
  Sender: FDA-Public Use
  Company Number: 200708AGG00697

PATIENT
  Age: 65 Year
  Sex: Male
  Weight: 80 kg

DRUGS (6)
  1. TIROFIBAN [Suspect]
     Indication: CORONARY ARTERY DISEASE
     Dosage: (INTRAVENOUS BOLUS), (INTRAVENOUS DRIP)
     Route: 040
  2. TIROFIBAN [Suspect]
     Indication: CORONARY ARTERY DISEASE
     Dosage: (INTRAVENOUS BOLUS), (INTRAVENOUS DRIP)
     Route: 040
  3. ASPIRIN [Concomitant]
  4. CLOPIDOGREL BISULFATE [Concomitant]
  5. HEPARIN [Concomitant]
  6. ENOXAPARIN SODIUM [Concomitant]

REACTIONS (1)
  - CEREBELLAR HAEMATOMA [None]
